FAERS Safety Report 5906898-X (Version None)
Quarter: 2008Q4

REPORT INFORMATION
  Report Type: 
  Country: None (occurrence: None)
  Receive Date: 20081003
  Receipt Date: 20080923
  Transmission Date: 20090506
  Serious: Yes (Other)
  Sender: FDA-Public Use
  Company Number: US-SP-2008-02968

PATIENT
  Age: 58 Year
  Sex: Female

DRUGS (7)
  1. IMOGAM RABIES [Suspect]
     Indication: ANIMAL BITE
     Route: 065
     Dates: start: 20070820
  2. RABAVERT [Suspect]
     Indication: ACCIDENTAL EXPOSURE
     Route: 065
     Dates: start: 20070820
  3. IMOVAX RABIES I.D. [Suspect]
     Indication: ACCIDENTAL EXPOSURE
     Route: 065
     Dates: start: 20070823
  4. IMOVAX RABIES I.D. [Suspect]
     Route: 065
     Dates: start: 20070827
  5. IMOVAX RABIES I.D. [Suspect]
     Route: 065
     Dates: start: 20070903
  6. IMOVAX RABIES I.D. [Suspect]
     Route: 065
     Dates: start: 20070917
  7. SYNTHROID [Concomitant]
     Indication: THYROID DISORDER

REACTIONS (13)
  - ANXIETY [None]
  - DYSPHONIA [None]
  - INSOMNIA [None]
  - MADAROSIS [None]
  - NAIL BED INFLAMMATION [None]
  - NIGHT SWEATS [None]
  - PHOTOPSIA [None]
  - RASH [None]
  - SKIN ATROPHY [None]
  - TACHYCARDIA [None]
  - TREMOR [None]
  - VITREOUS DETACHMENT [None]
  - WEIGHT DECREASED [None]
